FAERS Safety Report 23447571 (Version 1)
Quarter: 2024Q1

REPORT INFORMATION
  Report Type: Spontaneous
  Country: US (occurrence: None)
  Receive Date: 20240125
  Receipt Date: 20240125
  Transmission Date: 20240410
  Serious: Yes (Life-Threatening, Hospitalization)
  Sender: FDA-Public Use
  Company Number: None

PATIENT
  Age: 52 Year
  Sex: Female

DRUGS (1)
  1. FLUDEOXYGLUCOSE F-18 [Suspect]
     Active Substance: FLUDEOXYGLUCOSE F-18

REACTIONS (5)
  - Dyspnoea [None]
  - Throat tightness [None]
  - Anaphylactic reaction [None]
  - Cerebrovascular accident [None]
  - Post-traumatic stress disorder [None]

NARRATIVE: CASE EVENT DATE: 20231023
